FAERS Safety Report 7969238-0 (Version None)
Quarter: 2011Q4

REPORT INFORMATION
  Report Type: 
  Country: None (occurrence: None)
  Receive Date: 20111209
  Receipt Date: 20111205
  Transmission Date: 20120403
  Serious: Yes (Hospitalization)
  Sender: FDA-Public Use
  Company Number: US-MERCK-1112USA00494

PATIENT
  Age: 73 Year
  Sex: Male

DRUGS (2)
  1. DECADRON [Suspect]
     Route: 065
  2. REVLIMID [Concomitant]
     Indication: MULTIPLE MYELOMA
     Route: 048
     Dates: start: 20110817, end: 20110915

REACTIONS (2)
  - LOCALISED INFECTION [None]
  - ABSCESS LIMB [None]
